FAERS Safety Report 23322463 (Version 1)
Quarter: 2023Q4

REPORT INFORMATION
  Report Type: Spontaneous
  Country: FR (occurrence: FR)
  Receive Date: 20231220
  Receipt Date: 20231220
  Transmission Date: 20240110
  Serious: Yes (Hospitalization)
  Sender: FDA-Public Use
  Company Number: None

PATIENT
  Age: 40 Year
  Weight: 79 kg

DRUGS (4)
  1. METHOTREXATE SODIUM [Suspect]
     Active Substance: METHOTREXATE SODIUM
     Indication: Burkitt^s lymphoma
     Dosage: TIME INTERVAL: 1 TOTAL
     Route: 042
     Dates: start: 20231103, end: 20231103
  2. DOXORUBICIN HYDROCHLORIDE [Suspect]
     Active Substance: DOXORUBICIN HYDROCHLORIDE
     Indication: Burkitt^s lymphoma
     Route: 042
     Dates: start: 20231103, end: 20231103
  3. CYCLOPHOSPHAMIDE [Suspect]
     Active Substance: CYCLOPHOSPHAMIDE
     Indication: Burkitt^s lymphoma
     Dosage: 4 PERFUSIONS 19/10/23, 27/10/23, 05/11/23 ET 06/11/23
     Route: 042
     Dates: start: 20231019, end: 20231106
  4. VINCRISTINE [Suspect]
     Active Substance: VINCRISTINE
     Indication: Burkitt^s lymphoma
     Dosage: 3 PERFUSIONS 17/10/23, 27/10/23 ET 03/11/23
     Route: 042
     Dates: start: 20231017, end: 20231103

REACTIONS (2)
  - Pancytopenia [Recovering/Resolving]
  - Tumour lysis syndrome [Recovered/Resolved]

NARRATIVE: CASE EVENT DATE: 20231105
